FAERS Safety Report 8248936-8 (Version None)
Quarter: 2012Q2

REPORT INFORMATION
  Report Type: 
  Country: None (occurrence: None)
  Receive Date: 20120402
  Receipt Date: 20120323
  Transmission Date: 20120825
  Serious: Yes (Disabling, Other)
  Sender: FDA-Public Use
  Company Number: DE-BRISTOL-MYERS SQUIBB COMPANY-16382418

PATIENT
  Age: 36 Year
  Sex: Female
  Weight: 60 kg

DRUGS (1)
  1. ABILIFY [Suspect]
     Indication: SCHIZOPHRENIA
     Dosage: 10MG, THEN 15MG,30MG + FINALLY 15MG SINCE MAY-2010 10MG/DY IS TAKEN
     Route: 048
     Dates: start: 20040101, end: 20100101

REACTIONS (1)
  - BASEDOW'S DISEASE [None]
